FAERS Safety Report 26175683 (Version 1)
Quarter: 2025Q4

REPORT INFORMATION
  Report Type: Report from Study
  Country: EU (occurrence: EU)
  Receive Date: 20251218
  Receipt Date: 20251218
  Transmission Date: 20260117
  Serious: Yes (Hospitalization, Other)
  Sender: ROCHE
  Company Number: EU-ROCHE-10000449697

PATIENT

DRUGS (1)
  1. TOCILIZUMAB [Suspect]
     Active Substance: TOCILIZUMAB
     Indication: Endocrine ophthalmopathy

REACTIONS (9)
  - COVID-19 [Unknown]
  - Injection site reaction [Unknown]
  - Asthenia [Unknown]
  - Diarrhoea [Unknown]
  - Blood creatine phosphokinase increased [Unknown]
  - Cutaneous vasculitis [Unknown]
  - Myopathy toxic [Unknown]
  - Hepatotoxicity [Unknown]
  - Multiple sclerosis relapse [Unknown]
